FAERS Safety Report 14911651 (Version 1)
Quarter: 2018Q2

REPORT INFORMATION
  Report Type: Spontaneous
  Country: GB (occurrence: GB)
  Receive Date: 20180518
  Receipt Date: 20180518
  Transmission Date: 20180711
  Serious: Yes (Death)
  Sender: FDA-Public Use
  Company Number: GB-TEVA-2018-GB-894208

PATIENT
  Age: 25 Year
  Sex: Male

DRUGS (3)
  1. DIAZEPAM. [Suspect]
     Active Substance: DIAZEPAM
     Indication: DRUG DETOXIFICATION
     Route: 065
  2. DIHYDROCODEINE [Suspect]
     Active Substance: DIHYDROCODEINE
     Indication: DRUG DETOXIFICATION
     Dosage: 240 MILLIGRAM DAILY; ON A REDUCING BASIS OVER 12 DAYS.
     Route: 065
     Dates: start: 20110104, end: 20110106
  3. THIAMINE. [Suspect]
     Active Substance: THIAMINE
     Route: 065

REACTIONS (1)
  - Overdose [Fatal]
